FAERS Safety Report 9287335 (Version 3)
Quarter: 2013Q3

REPORT INFORMATION
  Report Type: Spontaneous
  Country: DE (occurrence: DE)
  Receive Date: 20130514
  Receipt Date: 20130703
  Transmission Date: 20140515
  Serious: Yes (Other)
  Sender: FDA-Public Use
  Company Number: DE-AMGEN-DEUSP2013033241

PATIENT
  Age: 61 Year
  Sex: Male

DRUGS (3)
  1. ENBREL [Suspect]
     Indication: RHEUMATOID ARTHRITIS
     Dosage: 50 MG, WEEKLY
     Route: 065
     Dates: start: 20121120
  2. METHOTREXATE SODIUM [Suspect]
     Dosage: UNK
     Dates: start: 2005, end: 201302
  3. PREDNISOLON                        /00016201/ [Concomitant]
     Dosage: UNK

REACTIONS (2)
  - B-cell lymphoma [Not Recovered/Not Resolved]
  - Epstein-Barr virus associated lymphoma [Not Recovered/Not Resolved]
